FAERS Safety Report 6080339-7 (Version None)
Quarter: 2009Q1

REPORT INFORMATION
  Report Type: 
  Country: None (occurrence: None)
  Receive Date: 20090217
  Receipt Date: 20090216
  Transmission Date: 20090719
  Serious: Yes (Hospitalization, Other)
  Sender: FDA-Public Use
  Company Number: CA-BAYER-200912739GPV

PATIENT
  Age: 36 Year
  Sex: Male

DRUGS (2)
  1. SORAFENIB [Suspect]
     Indication: METASTATIC RENAL CELL CARCINOMA
     Route: 048
     Dates: start: 20051001, end: 20060401
  2. NARCOTICS [Concomitant]
     Indication: PAIN MANAGEMENT
     Route: 065

REACTIONS (5)
  - GASTROINTESTINAL STOMA COMPLICATION [None]
  - IMPAIRED HEALING [None]
  - INTESTINAL OBSTRUCTION [None]
  - MUCOSAL HAEMORRHAGE [None]
  - NECROSIS [None]
